FAERS Safety Report 21179656 (Version 2)
Quarter: 2023Q1

REPORT INFORMATION
  Report Type: Report from Study
  Country: US (occurrence: US)
  Receive Date: 20220805
  Receipt Date: 20230228
  Transmission Date: 20230418
  Serious: Yes (Other)
  Sender: FDA-Public Use
  Company Number: US-ABBVIE-22K-163-4493433-00

PATIENT
  Sex: Male

DRUGS (6)
  1. VENCLEXTA [Suspect]
     Active Substance: VENETOCLAX
     Indication: Metastatic neoplasm
     Dosage: TIME INTERVAL: 0.125 DAYS: TAKE 8 TABLET(S) BY MOUTH DAILY?FORM STRENGTH 100 MILLIGRAM
     Route: 048
  2. VENCLEXTA [Suspect]
     Active Substance: VENETOCLAX
     Indication: Metastatic neoplasm
     Dosage: TAKE 4 TABLET(S) BY MOUTH DAILY FOR 3 DAYS?FORM STRENGTH 100 MILLIGRAM
     Route: 048
  3. VENCLEXTA [Suspect]
     Active Substance: VENETOCLAX
     Indication: Metastatic neoplasm
     Dosage: TAKE 2 TABLET(S) BY MOUTH DAILY FOR 3 DAYS?FORM STRENGTH 100 MILLIGRAM
     Route: 048
  4. VENCLEXTA [Suspect]
     Active Substance: VENETOCLAX
     Indication: Metastatic neoplasm
     Dosage: TAKE 8 TABLET(S) BY MOUTH DAILY FOR 3 DAY?FORM STRENGTH 100 MILLIGRAM
     Route: 048
  5. VENCLEXTA [Suspect]
     Active Substance: VENETOCLAX
     Indication: Metastatic neoplasm
     Route: 048
  6. LENVIMA [Concomitant]
     Active Substance: LENVATINIB
     Indication: Neoplasm malignant

REACTIONS (2)
  - Neoplasm malignant [Unknown]
  - Off label use [Unknown]
